FAERS Safety Report 10698603 (Version 2)
Quarter: 2016Q3

REPORT INFORMATION
  Report Type: Spontaneous
  Country: US (occurrence: US)
  Receive Date: 20150108
  Receipt Date: 20160729
  Transmission Date: 20161109
  Serious: Yes (Other)
  Sender: FDA-Public Use
  Company Number: US-MYLANLABS-2014M1014132

PATIENT

DRUGS (2)
  1. MYLOTARG [Suspect]
     Active Substance: GEMTUZUMAB OZOGAMICIN
     Dosage: 1.1 MG, UNK
     Route: 042
     Dates: start: 20141030, end: 20141030
  2. CYTARABINE. [Suspect]
     Active Substance: CYTARABINE
     Dosage: UNK,
     Route: 037
     Dates: start: 20141015, end: 20141015

REACTIONS (5)
  - Platelet count decreased [Not Recovered/Not Resolved]
  - Hypokalaemia [Not Recovered/Not Resolved]
  - Alanine aminotransferase increased [Not Recovered/Not Resolved]
  - Aspartate aminotransferase increased [Recovered/Resolved]
  - Anaemia [Not Recovered/Not Resolved]

NARRATIVE: CASE EVENT DATE: 20141118
